FAERS Safety Report 7700147-8 (Version None)
Quarter: 2011Q3

REPORT INFORMATION
  Report Type: 
  Country: None (occurrence: None)
  Receive Date: 20110822
  Receipt Date: 20110817
  Transmission Date: 20111222
  Serious: No
  Sender: FDA-Public Use
  Company Number: US-PFIZER INC-2011190779

PATIENT
  Sex: Male
  Weight: 100 kg

DRUGS (2)
  1. PRISTIQ [Suspect]
     Indication: DEPRESSION
     Dosage: 50 MG, DAILY
     Route: 048
     Dates: start: 20110809
  2. LEXAPRO [Suspect]
     Indication: DEPRESSION
     Dosage: 20 MG, DAILY
     Route: 048
     Dates: start: 20080101, end: 20110808

REACTIONS (4)
  - DRUG DOSE OMISSION [None]
  - VISION BLURRED [None]
  - FEELING ABNORMAL [None]
  - STRABISMUS [None]
